FAERS Safety Report 17986287 (Version 8)
Quarter: 2020Q3

REPORT INFORMATION
  Report Type: Report from Study
  Country: GB (occurrence: GB)
  Receive Date: 20200707
  Receipt Date: 20200921
  Transmission Date: 20201103
  Serious: Yes (Other)
  Sender: FDA-Public Use
  Company Number: GB-BRISTOL-MYERS SQUIBB COMPANY-BMS-2020-051854

PATIENT
  Age: 33 Year
  Sex: Female

DRUGS (5)
  1. VIRAMUNE [Suspect]
     Active Substance: NEVIRAPINE
     Indication: HIV INFECTION
     Dosage: 400 MILLIGRAM, QD
     Route: 065
     Dates: start: 20000122
  2. NORVIR [Suspect]
     Active Substance: RITONAVIR
     Indication: HIV INFECTION
     Dosage: 500 MILLIGRAM, QD
     Route: 065
     Dates: start: 20000122
  3. DIDANOSINE. [Suspect]
     Active Substance: DIDANOSINE
     Indication: HIV INFECTION
     Dosage: 400 MILLIGRAM, QD
     Route: 065
     Dates: start: 20040122
  4. SEBIVO [Suspect]
     Active Substance: TELBIVUDINE
     Indication: PRODUCT USED FOR UNKNOWN INDICATION
     Dosage: UNK
     Route: 065
  5. RETROVIR [Suspect]
     Active Substance: ZIDOVUDINE
     Indication: HIV INFECTION
     Dosage: 250 MILLIGRAM, BID
     Route: 065
     Dates: start: 20000122

REACTIONS (2)
  - Maternal exposure during pregnancy [Recovered/Resolved]
  - Stillbirth [Unknown]

NARRATIVE: CASE EVENT DATE: 200406
